FAERS Safety Report 25338397 (Version 1)
Quarter: 2025Q2

REPORT INFORMATION
  Report Type: Spontaneous
  Country: US (occurrence: US)
  Receive Date: 20250520
  Receipt Date: 20250520
  Transmission Date: 20250717
  Serious: No
  Sender: SANOFI AVENTIS
  Company Number: US-SA-2025SA143461

PATIENT
  Age: 64 Year
  Sex: Male
  Weight: 83.91 kg

DRUGS (6)
  1. DUPIXENT [Suspect]
     Active Substance: DUPILUMAB
     Indication: Dermatitis atopic
     Dosage: 300 MG, QOW
     Route: 058
     Dates: start: 2025
  2. MIRABEGRON [Concomitant]
     Active Substance: MIRABEGRON
  3. MUPIROCIN [Concomitant]
     Active Substance: MUPIROCIN
  4. MINERALS\VITAMINS [Concomitant]
     Active Substance: MINERALS\VITAMINS
  5. PIMECROLIMUS [Concomitant]
     Active Substance: PIMECROLIMUS
  6. TADALAFIL [Concomitant]
     Active Substance: TADALAFIL

REACTIONS (2)
  - Pigmentation disorder [Not Recovered/Not Resolved]
  - Skin haemorrhage [Not Recovered/Not Resolved]

NARRATIVE: CASE EVENT DATE: 20250101
